FAERS Safety Report 15645860 (Version 4)
Quarter: 2019Q1

REPORT INFORMATION
  Report Type: Spontaneous
  Country: JP (occurrence: JP)
  Receive Date: 20181121
  Receipt Date: 20190128
  Transmission Date: 20190417
  Serious: Yes (Other)
  Sender: FDA-Public Use
  Company Number: PHJP2018JP019652

PATIENT
  Sex: Male
  Weight: 64 kg

DRUGS (4)
  1. DIOVAN [Suspect]
     Active Substance: VALSARTAN
     Indication: HYPERTENSION
     Dosage: 20 MG, QD
     Route: 048
     Dates: start: 20120423, end: 20190121
  2. EQUMET [Suspect]
     Active Substance: METFORMIN HYDROCHLORIDE\VILDAGLIPTIN
     Indication: TYPE 2 DIABETES MELLITUS
     Dosage: 1 DF, BID
     Route: 048
     Dates: start: 20160308, end: 20190121
  3. CILOSINAMIN [Concomitant]
     Active Substance: CILOSTAZOL
     Indication: CAROTID ARTERY STENOSIS
     Dosage: 1 DF, BID
     Route: 048
     Dates: start: 20050201, end: 20190121
  4. SEIBULE [Concomitant]
     Active Substance: MIGLITOL
     Indication: TYPE 2 DIABETES MELLITUS
     Dosage: 50 MG, TID
     Route: 065
     Dates: start: 20150616, end: 20190121

REACTIONS (2)
  - Concomitant disease aggravated [Recovering/Resolving]
  - Carotid artery stenosis [Recovering/Resolving]
